FAERS Safety Report 26100795 (Version 1)
Quarter: 2025Q4

REPORT INFORMATION
  Report Type: Spontaneous
  Country: ME (occurrence: ME)
  Receive Date: 20251128
  Receipt Date: 20251128
  Transmission Date: 20260118
  Serious: Yes (Hospitalization, Other)
  Sender: MERCK SHARP & DOHME LLC
  Company Number: ME-009507513-2352640

PATIENT
  Sex: Male

DRUGS (10)
  1. ISENTRESS [Suspect]
     Active Substance: RALTEGRAVIR POTASSIUM
     Route: 048
     Dates: end: 202505
  2. DELSTRIGO [Suspect]
     Active Substance: DORAVIRINE\LAMIVUDINE\TENOFOVIR DISOPROXIL FUMARATE
     Route: 048
     Dates: start: 202505
  3. Trimethoprim cotrimoxazole [Concomitant]
  4. AMPICILLIN [Concomitant]
     Active Substance: AMPICILLIN
  5. FLUCONAZOLE [Concomitant]
     Active Substance: FLUCONAZOLE
  6. GANCICLOVIR [Concomitant]
     Active Substance: GANCICLOVIR
  7. ENOXAPARIN SODIUM [Concomitant]
     Active Substance: ENOXAPARIN SODIUM
  8. FOLIC ACID [Concomitant]
     Active Substance: FOLIC ACID
  9. FILGRASTIM [Concomitant]
     Active Substance: FILGRASTIM
  10. EMTRICITABINE\TENOFOVIR [Concomitant]
     Active Substance: EMTRICITABINE\TENOFOVIR

REACTIONS (5)
  - Hospitalisation [Unknown]
  - Hepatitis [Unknown]
  - Hyperlipidaemia [Unknown]
  - Diffuse large B-cell lymphoma [Unknown]
  - Thoracic cavity drainage [Unknown]

NARRATIVE: CASE EVENT DATE: 20250501
